FAERS Safety Report 23153388 (Version 1)
Quarter: 2023Q4

REPORT INFORMATION
  Report Type: Spontaneous
  Country: EG (occurrence: EG)
  Receive Date: 20231107
  Receipt Date: 20231107
  Transmission Date: 20240110
  Serious: Yes (Life-Threatening)
  Sender: FDA-Public Use
  Company Number: EG-HIKMA PHARMACEUTICALS USA INC.-EG-H14001-23-66687

PATIENT
  Age: 50 Year
  Sex: Female
  Weight: 80 kg

DRUGS (2)
  1. CARBOPLATIN [Suspect]
     Active Substance: CARBOPLATIN
     Indication: Breast cancer
     Dosage: 200 MILLIGRAM
     Route: 042
  2. PACLITAXEL [Concomitant]
     Active Substance: PACLITAXEL
     Indication: Breast cancer
     Dosage: 130 MILLIGRAM
     Route: 042

REACTIONS (4)
  - Asphyxia [Unknown]
  - Pruritus [Unknown]
  - Pulmonary oedema [Unknown]
  - Tongue oedema [Unknown]

NARRATIVE: CASE EVENT DATE: 20231015
